FAERS Safety Report 4697367-6 (Version None)
Quarter: 2005Q2

REPORT INFORMATION
  Report Type: 
  Country: None (occurrence: None)
  Receive Date: 20050621
  Receipt Date: 20050608
  Transmission Date: 20051028
  Serious: Yes (Other)
  Sender: FDA-Public Use
  Company Number: USA0506100005

PATIENT
  Age: 57 Year
  Sex: Female
  Weight: 63 kg

DRUGS (1)
  1. HUMULIN N [Suspect]
     Dates: start: 19900101, end: 20040101

REACTIONS (2)
  - ADHESION [None]
  - DIABETIC NEUROPATHY [None]
